FAERS Safety Report 10213562 (Version 1)
Quarter: 2014Q2

REPORT INFORMATION
  Report Type: Spontaneous
  Country: US (occurrence: None)
  Receive Date: 20140602
  Receipt Date: 20140602
  Transmission Date: 20141212
  Serious: Yes (Other)
  Sender: FDA-Public Use
  Company Number: None

PATIENT
  Age: 36 Year
  Sex: Female
  Weight: 64.41 kg

DRUGS (1)
  1. BACLOFEN [Suspect]
     Indication: BACK DISORDER
     Dosage: 1 PILL AS NEEDED TAKEN BY MOUTH
     Route: 048
     Dates: start: 20140529

REACTIONS (4)
  - Dizziness [None]
  - Nausea [None]
  - Headache [None]
  - Vomiting [None]
